FAERS Safety Report 13363474 (Version 3)
Quarter: 2017Q3

REPORT INFORMATION
  Report Type: Spontaneous
  Country: US (occurrence: US)
  Receive Date: 20170323
  Receipt Date: 20170727
  Transmission Date: 20171127
  Serious: Yes (Other)
  Sender: FDA-Public Use
  Company Number: US-NOVOPROD-536502

PATIENT
  Age: 86 Year
  Sex: Male
  Weight: 72.56 kg

DRUGS (7)
  1. LEVEMIR [Suspect]
     Active Substance: INSULIN DETEMIR
     Indication: TYPE 1 DIABETES MELLITUS
     Dosage: UNK
     Route: 058
  2. NOVOLOG [Suspect]
     Active Substance: INSULIN ASPART
     Indication: TYPE 1 DIABETES MELLITUS
     Dosage: UNK
     Route: 058
  3. GLUCAGON. [Concomitant]
     Active Substance: GLUCAGON
     Indication: PRODUCT USED FOR UNKNOWN INDICATION
     Dosage: 1 MG, UNK
     Route: 030
  4. NOVOLIN N [Concomitant]
     Active Substance: INSULIN HUMAN
     Indication: PRODUCT USED FOR UNKNOWN INDICATION
     Dosage: 6 UNITS BEFORE BREAKFAST (FULL DOSING REGIMEN NOT AVAILABLE)
     Route: 058
  5. LANTUS [Suspect]
     Active Substance: INSULIN GLARGINE
     Indication: TYPE 1 DIABETES MELLITUS
     Dosage: UNK
     Route: 058
  6. GLUCOSE [Concomitant]
     Active Substance: DEXTROSE
     Indication: PRODUCT USED FOR UNKNOWN INDICATION
     Dosage: 4 G, CHEWABLE
     Route: 048
  7. NOVOLIN R [Concomitant]
     Active Substance: INSULIN HUMAN
     Indication: PRODUCT USED FOR UNKNOWN INDICATION
     Dosage: 9 UNITS BEFORE BREAKFAST (FULL DOSING REGIMEN NOT AVAILABLE)
     Route: 058

REACTIONS (10)
  - Fluid retention [Recovered/Resolved]
  - Depression [Recovered/Resolved]
  - Peripheral swelling [Unknown]
  - Eye swelling [Not Recovered/Not Resolved]
  - Micturition disorder [Recovered/Resolved]
  - Cataract [Not Recovered/Not Resolved]
  - Dyspnoea [Recovered/Resolved]
  - Infection [Not Recovered/Not Resolved]
  - Eye haemorrhage [Not Recovered/Not Resolved]
  - Insulin resistance [Unknown]
